FAERS Safety Report 5742094-7 (Version None)
Quarter: 2008Q2

REPORT INFORMATION
  Report Type: 
  Country: None (occurrence: None)
  Receive Date: 20080519
  Receipt Date: 20080508
  Transmission Date: 20081010
  Serious: Yes (Other)
  Sender: FDA-Public Use
  Company Number: US-MERCK-0803USA03399

PATIENT
  Sex: Female

DRUGS (3)
  1. MAXALT [Suspect]
     Indication: MIGRAINE
     Route: 048
     Dates: start: 20080312
  2. CLARINEX D 24 HOUR [Suspect]
     Indication: INFLUENZA
     Route: 048
     Dates: start: 20080311, end: 20080312
  3. TOPAMAX [Concomitant]
     Indication: MIGRAINE
     Route: 065

REACTIONS (8)
  - CONFUSIONAL STATE [None]
  - DELIRIUM [None]
  - ERYTHEMA [None]
  - FEELING HOT [None]
  - HYPERHIDROSIS [None]
  - HYPERTENSION [None]
  - SOMNOLENCE [None]
  - VOMITING [None]
